FAERS Safety Report 18237781 (Version 14)
Quarter: 2025Q2

REPORT INFORMATION
  Report Type: Report from Study
  Country: US (occurrence: US)
  Receive Date: 20200907
  Receipt Date: 20250520
  Transmission Date: 20250717
  Serious: Yes (Other)
  Sender: TAKEDA
  Company Number: US-SHIRE-US202028696

PATIENT
  Sex: Female
  Weight: 52.154 kg

DRUGS (23)
  1. HUMAN IMMUNOGLOBULIN G [Suspect]
     Active Substance: HUMAN IMMUNOGLOBULIN G
     Indication: Immunodeficiency common variable
  2. HUMAN IMMUNOGLOBULIN G [Suspect]
     Active Substance: HUMAN IMMUNOGLOBULIN G
     Dosage: 8 GRAM, 1/WEEK
  3. HUMAN IMMUNOGLOBULIN G [Suspect]
     Active Substance: HUMAN IMMUNOGLOBULIN G
     Dosage: 9 GRAM, 1/WEEK
  4. ACETAMINOPHEN [Concomitant]
     Active Substance: ACETAMINOPHEN
  5. DIPHENHYDRAMINE [Concomitant]
     Active Substance: DIPHENHYDRAMINE
  6. LIDOCAINE [Concomitant]
     Active Substance: LIDOCAINE
  7. EPINEPHRINE [Concomitant]
     Active Substance: EPINEPHRINE
  8. LISINOPRIL [Concomitant]
     Active Substance: LISINOPRIL
  9. CINNAMON [Concomitant]
     Active Substance: CINNAMON
  10. VITAMIN D3 [Concomitant]
     Active Substance: CHOLECALCIFEROL
  11. FISH OIL [Concomitant]
     Active Substance: FISH OIL
  12. ALTOPREV [Concomitant]
     Active Substance: LOVASTATIN
  13. PREVACID [Concomitant]
     Active Substance: LANSOPRAZOLE
  14. PLAQUENIL [Concomitant]
     Active Substance: HYDROXYCHLOROQUINE SULFATE
  15. VITAMIN C [Concomitant]
     Active Substance: ASCORBIC ACID
  16. ZYRTEC [Concomitant]
     Active Substance: CETIRIZINE HYDROCHLORIDE
  17. METFORMIN HYDROCHLORIDE [Concomitant]
     Active Substance: METFORMIN HYDROCHLORIDE
  18. COLLAGEN [Concomitant]
     Active Substance: COLLAGEN
  19. DIPHENHYDRAMINE HYDROCHLORIDE [Concomitant]
     Active Substance: DIPHENHYDRAMINE HYDROCHLORIDE
  20. DOXYCYCLINE HYCLATE [Concomitant]
     Active Substance: DOXYCYCLINE HYCLATE
  21. FLONASE ALLERGY RELIEF [Concomitant]
     Active Substance: FLUTICASONE PROPIONATE
  22. MUCINEX [Concomitant]
     Active Substance: GUAIFENESIN
  23. METRONIDAZOLE [Concomitant]
     Active Substance: METRONIDAZOLE

REACTIONS (14)
  - Diverticulitis [Unknown]
  - Chronic sinusitis [Unknown]
  - Illness [Unknown]
  - Nasopharyngitis [Unknown]
  - Insurance issue [Unknown]
  - Post procedural infection [Unknown]
  - Infection [Unknown]
  - Liquid product physical issue [Unknown]
  - Product dose omission issue [Unknown]
  - Upper respiratory tract infection [Unknown]
  - Sinusitis [Not Recovered/Not Resolved]
  - Influenza [Unknown]
  - Chills [Unknown]
  - Fatigue [Unknown]
